FAERS Safety Report 8616123-7 (Version None)
Quarter: 2012Q3

REPORT INFORMATION
  Report Type: 
  Country: None (occurrence: None)
  Receive Date: 20120823
  Receipt Date: 20120808
  Transmission Date: 20120928
  Serious: Yes (Other)
  Sender: FDA-Public Use
  Company Number: JP-ROCHE-1092993

PATIENT
  Sex: Female
  Weight: 57 kg

DRUGS (6)
  1. AVASTIN [Suspect]
     Indication: BREAST CANCER METASTATIC
     Route: 041
     Dates: start: 20120509
  2. DENOSUMAB [Concomitant]
     Indication: BONE LESION
     Dosage: DRUG REPORTED AS : RANMARK
     Route: 058
     Dates: start: 20120509
  3. LIPITOR [Concomitant]
     Dosage: DOSAGE IS UNCERTAIN.
     Route: 048
  4. INSULIN LISPRO [Suspect]
     Indication: DIABETES MELLITUS
     Dosage: 18-56 UNITS
     Route: 058
  5. NEO-MERCAZOLE TAB [Concomitant]
     Dosage: DOSAGE IS UNCERTAIN.
     Route: 065
  6. PACLITAXEL [Concomitant]
     Indication: BREAST CANCER METASTATIC
     Route: 041
     Dates: start: 20120509

REACTIONS (1)
  - HYPOGLYCAEMIA [None]
